FAERS Safety Report 7070330-6 (Version None)
Quarter: 2010Q4

REPORT INFORMATION
  Report Type: 
  Country: None (occurrence: None)
  Receive Date: 20101028
  Receipt Date: 20101019
  Transmission Date: 20110411
  Serious: No
  Sender: FDA-Public Use
  Company Number: US-WYE-H18263610

PATIENT
  Age: 71 Year
  Sex: Female
  Weight: 54.03 kg

DRUGS (3)
  1. ADVIL [Suspect]
     Indication: BACK PAIN
     Dosage: 2 CAPLETS AT NIGHT
     Route: 048
     Dates: start: 20101001, end: 20101001
  2. CRESTOR [Concomitant]
  3. METOPROLOL [Concomitant]

REACTIONS (4)
  - DIZZINESS [None]
  - GAIT DISTURBANCE [None]
  - PAIN [None]
  - SOMNOLENCE [None]
